FAERS Safety Report 6103202-1 (Version None)
Quarter: 2009Q1

REPORT INFORMATION
  Report Type: 
  Country: None (occurrence: None)
  Receive Date: 20090227
  Receipt Date: 20090217
  Transmission Date: 20090719
  Serious: Yes (Hospitalization)
  Sender: FDA-Public Use
  Company Number: 2009-00173FE

PATIENT
  Age: 10 Year
  Sex: Female

DRUGS (3)
  1. SOMATROPIN () (SOMATROPIN) [Suspect]
     Indication: GROWTH HORMONE DEFICIENCY
     Dosage: 0.16 NA/3 MG,
     Dates: start: 20040201, end: 20040601
  2. SOMATROPIN () (SOMATROPIN) [Suspect]
     Indication: GROWTH HORMONE DEFICIENCY
     Dosage: 0.16 NA/3 MG,
     Dates: start: 20050301
  3. CORTISONE [Concomitant]

REACTIONS (4)
  - BRAIN OEDEMA [None]
  - CENTRAL NERVOUS SYSTEM INFLAMMATION [None]
  - HEADACHE [None]
  - VISUAL IMPAIRMENT [None]
